FAERS Safety Report 9233073 (Version 2)
Quarter: 2013Q2

REPORT INFORMATION
  Report Type: Report from Study
  Country: US (occurrence: US)
  Receive Date: 20130416
  Receipt Date: 20130419
  Transmission Date: 20140414
  Serious: Yes (Hospitalization, Other)
  Sender: FDA-Public Use
  Company Number: PHEH2013US008468

PATIENT
  Sex: Female

DRUGS (9)
  1. GILENYA [Suspect]
     Indication: MULTIPLE SCLEROSIS
     Dosage: 0.5 MG, QD
     Route: 048
     Dates: start: 20130402, end: 20130411
  2. TOVIAZ [Concomitant]
  3. GABAPENTIN [Concomitant]
  4. LORAZEPAM [Concomitant]
  5. BACLOFEN [Concomitant]
  6. VALTREX [Concomitant]
  7. ZOLPIDEM [Concomitant]
  8. PROVIGIL [Concomitant]
  9. PAXIL [Concomitant]

REACTIONS (5)
  - Intestinal obstruction [Recovering/Resolving]
  - Abdominal pain [Recovering/Resolving]
  - Ocular icterus [Recovering/Resolving]
  - Body temperature fluctuation [Recovering/Resolving]
  - Hepatic enzyme increased [Unknown]
